FAERS Safety Report 5553323-7 (Version None)
Quarter: 2007Q4

REPORT INFORMATION
  Report Type: 
  Country: None (occurrence: None)
  Receive Date: 20071213
  Receipt Date: 20071206
  Transmission Date: 20080405
  Serious: Yes (Hospitalization, Other)
  Sender: FDA-Public Use
  Company Number: US-RB-008730-07

PATIENT
  Sex: Male

DRUGS (2)
  1. SUBOXONE [Suspect]
     Dosage: UNKNOWN DOSAGE
     Route: 060
  2. ALCOHOL [Suspect]
     Indication: DRUG USE FOR UNKNOWN INDICATION
     Dosage: PATIENT HAD JUST STOPPED USING LARGE AMOUNTS OF ALCOHOL (DETAILS UNKNOWN)

REACTIONS (1)
  - CONVULSION [None]
